FAERS Safety Report 8984260 (Version 1)
Quarter: 2012Q4

REPORT INFORMATION
  Report Type: Spontaneous
  Country: GB (occurrence: None)
  Receive Date: 20121214
  Receipt Date: 20121214
  Transmission Date: 20130627
  Serious: Yes (Other)
  Sender: FDA-Public Use
  Company Number: GB-SEPTODONT-200100586

PATIENT
  Sex: Male

DRUGS (2)
  1. XYLONOR [Suspect]
     Indication: LOCAL ANAESTHESIA
     Route: 004
  2. LIGNOCAINE ADRENALINE [Suspect]
     Indication: LOCAL ANAESTHESIA
     Route: 004

REACTIONS (11)
  - Anxiety [None]
  - Toothache [None]
  - Hypoacusis [None]
  - Cough [None]
  - Asthenia [None]
  - Pyrexia [None]
  - Weight decreased [None]
  - Listless [None]
  - Decreased appetite [None]
  - Deafness [None]
  - Upper respiratory tract infection [None]
